FAERS Safety Report 9851059 (Version 1)
Quarter: 2014Q1

REPORT INFORMATION
  Report Type: Spontaneous
  Country: US (occurrence: US)
  Receive Date: 20140128
  Receipt Date: 20140128
  Transmission Date: 20141002
  Serious: No
  Sender: FDA-Public Use
  Company Number: US-DYAX CORP.-2013DX000119

PATIENT
  Sex: 0

DRUGS (1)
  1. KALBITOR [Suspect]
     Indication: SWELLING
     Route: 065

REACTIONS (3)
  - Swelling [Unknown]
  - Injection site pain [Recovered/Resolved]
  - Off label use [Unknown]
